FAERS Safety Report 12072639 (Version 1)
Quarter: 2016Q1

REPORT INFORMATION
  Report Type: Spontaneous
  Country: US (occurrence: None)
  Receive Date: 20160211
  Receipt Date: 20160211
  Transmission Date: 20160526
  Serious: Yes (Hospitalization)
  Sender: FDA-Public Use
  Company Number: None

PATIENT
  Age: 55 Year
  Sex: Female
  Weight: 66.8 kg

DRUGS (12)
  1. B COMPLEX-ASCORBIC [Concomitant]
  2. CALCIUM ACETATE. [Concomitant]
     Active Substance: CALCIUM ACETATE
  3. SEVELAMER [Concomitant]
     Active Substance: SEVELAMER
  4. VIEKIRA PAK [Suspect]
     Active Substance: DASABUVIR\OMBITASVIR\PARITAPREVIR\RITONAVIR
     Indication: HEPATITIS C
     Dosage: 12.5/75/50/250 MG, BID, PO
     Route: 048
     Dates: start: 20150722, end: 20151014
  5. CARVEDILOL. [Concomitant]
     Active Substance: CARVEDILOL
  6. SENNA-DOCUSATE [Concomitant]
  7. CARBONATE [Concomitant]
  8. ACID-FOLIC ACID [Concomitant]
  9. GENTAMICIN. [Concomitant]
     Active Substance: GENTAMICIN
  10. METRONIDAZOLE. [Concomitant]
     Active Substance: METRONIDAZOLE
  11. ASPIRIN. [Concomitant]
     Active Substance: ASPIRIN
  12. HYDROXYZINE [Concomitant]
     Active Substance: HYDROXYZINE\HYDROXYZINE HYDROCHLORIDE

REACTIONS (2)
  - Clostridium difficile colitis [None]
  - Peritonitis [None]

NARRATIVE: CASE EVENT DATE: 20150820
